FAERS Safety Report 5728314-3 (Version None)
Quarter: 2008Q2

REPORT INFORMATION
  Report Type: 
  Country: None (occurrence: None)
  Receive Date: 20080502
  Receipt Date: 20080502
  Transmission Date: 20081010
  Serious: Yes (Hospitalization)
  Sender: FDA-Public Use
  Company Number: None

PATIENT
  Sex: Male
  Weight: 17 kg

DRUGS (1)
  1. IBUPROFEN [Suspect]
     Dosage: ONE DOSE PO
     Route: 048
     Dates: start: 20080404, end: 20080404

REACTIONS (3)
  - ANGIOEDEMA [None]
  - DYSPNOEA [None]
  - URTICARIA [None]
